FAERS Safety Report 13762486 (Version 4)
Quarter: 2019Q4

REPORT INFORMATION
  Report Type: Spontaneous
  Country: US (occurrence: US)
  Receive Date: 20170718
  Receipt Date: 20191212
  Transmission Date: 20200122
  Serious: Yes (Death, Hospitalization, Other)
  Sender: FDA-Public Use
  Company Number: US-PFIZER INC-2017031893

PATIENT
  Age: 72 Year
  Sex: Female

DRUGS (8)
  1. METOPROLOL. [Concomitant]
     Active Substance: METOPROLOL
     Dosage: UNK
  2. LASIX [Concomitant]
     Active Substance: FUROSEMIDE
     Dosage: UNK
  3. KENALOG [Concomitant]
     Active Substance: TRIAMCINOLONE ACETONIDE
     Indication: MOUTH ULCERATION
     Dosage: UNK, 3X/DAY (DENT 5 GR 2, 1 APPLICATION TO TEETH 3X A DAY)
     Route: 004
     Dates: start: 20160701
  4. IBRANCE [Suspect]
     Active Substance: PALBOCICLIB
     Indication: BREAST CANCER FEMALE
     Dosage: 125 MG, CYCLIC (DAILY, FOR 21 DAYS REPEAT EVERY 28 DAYS 1 WEEK OFF)
     Route: 048
     Dates: start: 20170112
  5. TESSALON [Concomitant]
     Active Substance: BENZONATATE
     Indication: COUGH
     Dosage: 100 MG, AS NEEDED EVERY 6 HOURS
     Route: 048
     Dates: start: 20160919
  6. ALTACE [Concomitant]
     Active Substance: RAMIPRIL
     Dosage: 5 MG, DAILY
     Route: 048
     Dates: start: 20161025
  7. VALTREX [Concomitant]
     Active Substance: VALACYCLOVIR HYDROCHLORIDE
     Dosage: 500 MG, DAILY
     Route: 048
     Dates: start: 20160701
  8. INSULIN [Concomitant]
     Active Substance: INSULIN NOS
     Dosage: UNK

REACTIONS (6)
  - Hypoglycaemia [Unknown]
  - Metabolic encephalopathy [Unknown]
  - Neoplasm recurrence [Unknown]
  - Mental status changes [Unknown]
  - Death [Fatal]
  - Diabetic coma [Unknown]

NARRATIVE: CASE EVENT DATE: 2017
